FAERS Safety Report 22851085 (Version 7)
Quarter: 2023Q4

REPORT INFORMATION
  Report Type: Report from Study
  Country: US (occurrence: US)
  Receive Date: 20230822
  Receipt Date: 20231218
  Transmission Date: 20240110
  Serious: No
  Sender: FDA-Public Use
  Company Number: US-002147023-NVSC2023US182823

PATIENT
  Sex: Male

DRUGS (1)
  1. KESIMPTA [Suspect]
     Active Substance: OFATUMUMAB
     Indication: Product used for unknown indication
     Dosage: UNK
     Route: 065
     Dates: start: 20230813

REACTIONS (8)
  - Movement disorder [Unknown]
  - Arthralgia [Unknown]
  - Fear [Unknown]
  - Influenza like illness [Unknown]
  - Hyperhidrosis [Unknown]
  - Pain [Unknown]
  - Nasopharyngitis [Unknown]
  - Injection site pain [Unknown]
